FAERS Safety Report 4481906-4 (Version None)
Quarter: 2004Q4

REPORT INFORMATION
  Report Type: 
  Country: None (occurrence: None)
  Receive Date: 20041022
  Receipt Date: 20041014
  Transmission Date: 20050328
  Serious: Yes (Death, Hospitalization, Other)
  Sender: FDA-Public Use
  Company Number: US-JNJFOC-20040809156

PATIENT
  Sex: Female

DRUGS (12)
  1. REMICADE [Suspect]
     Indication: RHEUMATOID ARTHRITIS
     Route: 042
  2. ARAVA [Suspect]
     Indication: RHEUMATOID ARTHRITIS
  3. PRILOSEC [Concomitant]
  4. NORTRIPTYLINE HCL [Concomitant]
  5. DYAZIDE [Concomitant]
  6. DYAZIDE [Concomitant]
  7. POTASSIUM [Concomitant]
  8. PERCOCET [Concomitant]
  9. PERCOCET [Concomitant]
  10. DILANTIN [Concomitant]
  11. ATENOLOL [Concomitant]
  12. PRAZOSIN HCL [Concomitant]

REACTIONS (4)
  - ABSCESS SOFT TISSUE [None]
  - OSTEOMYELITIS [None]
  - PNEUMONIA [None]
  - POOR VENOUS ACCESS [None]
